FAERS Safety Report 16851154 (Version 1)
Quarter: 2019Q3

REPORT INFORMATION
  Report Type: Spontaneous
  Country: FR (occurrence: FR)
  Receive Date: 20190925
  Receipt Date: 20190925
  Transmission Date: 20191005
  Serious: Yes (Hospitalization, Other)
  Sender: FDA-Public Use
  Company Number: FR-BAYER-2019-171050

PATIENT
  Age: 45 Year
  Sex: Male

DRUGS (3)
  1. STIVARGA [Suspect]
     Active Substance: REGORAFENIB
     Indication: COLORECTAL CANCER METASTATIC
     Dosage: 120 MG PER DAY
     Dates: start: 201812, end: 201905
  2. TIPIRACIL [Concomitant]
     Active Substance: TIPIRACIL
     Dosage: UNK
     Dates: start: 20190728
  3. TRIFLURIDINE. [Concomitant]
     Active Substance: TRIFLURIDINE
     Dosage: UNK
     Dates: start: 20190728

REACTIONS (3)
  - Metastases to lung [None]
  - Lymphadenopathy [None]
  - Abscess drainage [None]

NARRATIVE: CASE EVENT DATE: 201905
